FAERS Safety Report 5716347-2 (Version None)
Quarter: 2008Q2

REPORT INFORMATION
  Report Type: 
  Country: None (occurrence: None)
  Receive Date: 20080424
  Receipt Date: 20080416
  Transmission Date: 20081010
  Serious: Yes (Disabling)
  Sender: FDA-Public Use
  Company Number: FR-WYE-G01409108

PATIENT
  Sex: Female

DRUGS (10)
  1. EFFEXOR [Suspect]
     Indication: DEPRESSION
     Dosage: 150 MG TOTAL DAILY
     Route: 048
     Dates: start: 20070501, end: 20071205
  2. EFFEXOR [Suspect]
     Dosage: DOSE PROGRESSIVELY REDUCED UNTIL WITHDRAWAL
     Route: 048
     Dates: start: 20071206, end: 20071220
  3. ALDACTONE [Concomitant]
     Route: 048
  4. TRIATEC [Concomitant]
     Dosage: 10 MG (FREQUENCY UNKNOWN)
     Route: 048
  5. OXAZEPAM [Concomitant]
     Route: 048
  6. FORLAX [Concomitant]
     Dosage: UNKNOWN
     Route: 048
  7. GLUCOPHAGE [Concomitant]
     Dosage: 500 MG (FREQUENCY UNKNOWN)
     Route: 048
  8. EQUANIL [Concomitant]
     Route: 048
  9. TRIMEPRAZINE TAB [Suspect]
     Route: 048
     Dates: end: 20071101
  10. CARDENSIEL [Concomitant]
     Dosage: 1.25 MG (FREQUENCY UNKNOWN)
     Route: 048

REACTIONS (1)
  - PARKINSONISM [None]
